FAERS Safety Report 16468574 (Version 1)
Quarter: 2019Q2

REPORT INFORMATION
  Report Type: Spontaneous
  Country: US (occurrence: US)
  Receive Date: 20190514
  Receipt Date: 20190514
  Transmission Date: 20190711
  Serious: Yes (Hospitalization)
  Sender: FDA-Public Use
  Company Number: None

PATIENT
  Age: 58 Year
  Sex: Male

DRUGS (1)
  1. TACROLIMUS (ACCORD) 0.5MG  ACCORD HEALTHCARE [Suspect]
     Active Substance: TACROLIMUS
     Indication: BONE MARROW TRANSPLANT
     Dosage: ?          OTHER DOSE:0.5MG;?
     Route: 048
     Dates: start: 20190412

REACTIONS (1)
  - Urinary tract infection [None]

NARRATIVE: CASE EVENT DATE: 20190427
